FAERS Safety Report 11465371 (Version 7)
Quarter: 2017Q1

REPORT INFORMATION
  Report Type: Report from Study
  Country: CA (occurrence: CA)
  Receive Date: 20150907
  Receipt Date: 20170316
  Transmission Date: 20170428
  Serious: Yes (Death, Life-Threatening, Hospitalization, Other)
  Sender: FDA-Public Use
  Company Number: CA-ROCHE-1630322

PATIENT
  Age: 63 Year
  Sex: Female

DRUGS (17)
  1. OXAZEPAM. [Concomitant]
     Active Substance: OXAZEPAM
  2. ROSUVASTATIN. [Concomitant]
     Active Substance: ROSUVASTATIN
  3. CITALOPRAM [Concomitant]
     Active Substance: CITALOPRAM HYDROBROMIDE
  4. METHOTREXATE. [Concomitant]
     Active Substance: METHOTREXATE
  5. PANTOLOC [Concomitant]
     Active Substance: PANTOPRAZOLE SODIUM
  6. ACETYLSALICYLIC ACID [Concomitant]
     Active Substance: ASPIRIN
  7. ATENOLOL. [Concomitant]
     Active Substance: ATENOLOL
  8. RITUXAN [Suspect]
     Active Substance: RITUXIMAB
     Indication: RHEUMATOID ARTHRITIS
     Route: 042
     Dates: start: 20140916, end: 20160413
  9. INSULIN [Concomitant]
     Active Substance: INSULIN NOS
  10. LASIX [Concomitant]
     Active Substance: FUROSEMIDE
     Route: 065
  11. AMITRIPTYLINE [Concomitant]
     Active Substance: AMITRIPTYLINE
  12. DIPHENHYDRAMINE. [Concomitant]
     Active Substance: DIPHENHYDRAMINE
     Indication: PREMEDICATION
     Route: 048
     Dates: start: 20140916, end: 20160413
  13. ACETAMINOPHEN. [Concomitant]
     Active Substance: ACETAMINOPHEN
     Indication: PREMEDICATION
     Route: 048
     Dates: start: 20140916, end: 20160413
  14. METHYLPREDNISOLONE. [Concomitant]
     Active Substance: METHYLPREDNISOLONE
     Indication: PREMEDICATION
     Route: 042
     Dates: start: 20140916, end: 20160413
  15. FOLIC ACID. [Concomitant]
     Active Substance: FOLIC ACID
  16. COVERSYL [Concomitant]
     Active Substance: PERINDOPRIL
  17. METFORMIN [Concomitant]
     Active Substance: METFORMIN HYDROCHLORIDE

REACTIONS (17)
  - Intestinal perforation [Unknown]
  - Ovarian cyst [Unknown]
  - Bronchitis [Not Recovered/Not Resolved]
  - Hot flush [Unknown]
  - Urinary retention [Not Recovered/Not Resolved]
  - Dizziness [Unknown]
  - Coma [Fatal]
  - Hepatic mass [Unknown]
  - Hyperhidrosis [Unknown]
  - Pulmonary oedema [Unknown]
  - Oedema peripheral [Not Recovered/Not Resolved]
  - Clostridium difficile infection [Unknown]
  - Dyspnoea [Unknown]
  - Migraine [Unknown]
  - Back pain [Not Recovered/Not Resolved]
  - Mobility decreased [Not Recovered/Not Resolved]
  - Fatigue [Unknown]

NARRATIVE: CASE EVENT DATE: 2015
